FAERS Safety Report 4834496-8 (Version None)
Quarter: 2005Q4

REPORT INFORMATION
  Report Type: 
  Country: None (occurrence: None)
  Receive Date: 20051122
  Receipt Date: 20041229
  Transmission Date: 20060501
  Serious: No
  Sender: FDA-Public Use
  Company Number: US-BRISTOL-MYERS SQUIBB COMPANY-12809778

PATIENT
  Age: 62 Year
  Sex: Female
  Weight: 89 kg

DRUGS (6)
  1. PRAVACHOL [Suspect]
     Indication: BLOOD CHOLESTEROL INCREASED
     Route: 048
     Dates: end: 20040101
  2. NEXIUM [Concomitant]
  3. ASPIRIN [Concomitant]
  4. FUROSEMIDE [Concomitant]
  5. FLOVENT [Concomitant]
  6. SEREVENT [Concomitant]

REACTIONS (2)
  - ARTHRALGIA [None]
  - DYSPNOEA [None]
